FAERS Safety Report 11947688 (Version 2)
Quarter: 2016Q1

REPORT INFORMATION
  Report Type: Spontaneous
  Country: JP (occurrence: JP)
  Receive Date: 20160125
  Receipt Date: 20160209
  Transmission Date: 20160526
  Serious: Yes (Hospitalization)
  Sender: FDA-Public Use
  Company Number: JP-PFIZER INC-2016032506

PATIENT
  Age: 51 Year
  Sex: Male
  Weight: 60 kg

DRUGS (10)
  1. REMIFENTANIL [Concomitant]
     Active Substance: REMIFENTANIL
     Indication: ANAESTHESIA
     Dosage: 0.3 UG/KG/MIN
  2. HEPARIN SODIUM. [Suspect]
     Active Substance: HEPARIN SODIUM
     Indication: ANTICOAGULANT THERAPY
     Dosage: 2000 IU, DAILY
  3. FENTANYL. [Concomitant]
     Active Substance: FENTANYL
     Dosage: 1300 ?G, UNK
  4. ROCURONIUM [Concomitant]
     Active Substance: ROCURONIUM BROMIDE
     Indication: ANAESTHESIA
     Dosage: 60 MG, UNK
  5. ACETYLSALICYLIC ACID [Suspect]
     Active Substance: ASPIRIN
     Indication: ANTICOAGULANT THERAPY
     Dosage: UNK
  6. MIDAZOLAM [Concomitant]
     Active Substance: MIDAZOLAM\MIDAZOLAM HYDROCHLORIDE
     Indication: ANAESTHESIA
     Dosage: 10 MG, UNK
  7. PROPOFOL. [Concomitant]
     Active Substance: PROPOFOL
     Indication: ANAESTHESIA
     Dosage: 3-4 MG/KG/H
  8. WARFARIN [Suspect]
     Active Substance: WARFARIN
     Indication: ANTICOAGULANT THERAPY
     Dosage: UNK
  9. FENTANYL. [Concomitant]
     Active Substance: FENTANYL
     Indication: ANAESTHESIA
     Dosage: 100 ?G, UNK
  10. REMIFENTANIL [Concomitant]
     Active Substance: REMIFENTANIL
     Dosage: 0.1-0.3 ?G/KG/MIN

REACTIONS (3)
  - Haemorrhage [Recovered/Resolved]
  - Hypotension [Recovered/Resolved]
  - Staphylococcal infection [Recovered/Resolved]
